FAERS Safety Report 14673328 (Version 1)
Quarter: 2018Q1

REPORT INFORMATION
  Report Type: Spontaneous
  Country: RO (occurrence: RO)
  Receive Date: 20180323
  Receipt Date: 20180323
  Transmission Date: 20180509
  Serious: Yes (Other)
  Sender: FDA-Public Use
  Company Number: RO-TORRENT-00000044

PATIENT
  Age: 8 Month
  Sex: Male

DRUGS (4)
  1. ASPIRIN. [Suspect]
     Active Substance: ASPIRIN
     Indication: KAWASAKI^S DISEASE
  2. CLOPIDOGREL [Suspect]
     Active Substance: CLOPIDOGREL BISULFATE
     Indication: KAWASAKI^S DISEASE
     Dosage: 0.2 MG/KG/DAY
  3. ENOXAPARIN SODIUM. [Concomitant]
     Active Substance: ENOXAPARIN SODIUM
     Indication: KAWASAKI^S DISEASE
     Dosage: 0.1 MG/KG/DAY
  4. WARFARIN [Concomitant]
     Active Substance: WARFARIN
     Indication: KAWASAKI^S DISEASE

REACTIONS (5)
  - Aneurysm [Recovering/Resolving]
  - Drug ineffective [Unknown]
  - Condition aggravated [Recovering/Resolving]
  - Off label use [Unknown]
  - Coronary artery thrombosis [Recovering/Resolving]
